FAERS Safety Report 5585610-0 (Version None)
Quarter: 2008Q1

REPORT INFORMATION
  Report Type: 
  Country: None (occurrence: None)
  Receive Date: 20080109
  Receipt Date: 20080102
  Transmission Date: 20080703
  Serious: Yes (Disabling)
  Sender: FDA-Public Use
  Company Number: US-MERCK-0712USA02378

PATIENT
  Age: 69 Year
  Sex: Male

DRUGS (2)
  1. VYTORIN [Suspect]
     Indication: LOW DENSITY LIPOPROTEIN INCREASED
     Route: 048
     Dates: start: 20070621, end: 20071205
  2. ASPIRIN [Concomitant]
     Route: 048

REACTIONS (3)
  - HEADACHE [None]
  - MYALGIA [None]
  - TENDONITIS [None]
